FAERS Safety Report 17462335 (Version 3)
Quarter: 2020Q2

REPORT INFORMATION
  Report Type: Spontaneous
  Country: CZ (occurrence: CZ)
  Receive Date: 20200226
  Receipt Date: 20200420
  Transmission Date: 20200713
  Serious: Yes (Other)
  Sender: FDA-Public Use
  Company Number: CZ-ALK-ABELLO A/S-2020AA000562

PATIENT

DRUGS (1)
  1. ACARIZAX [Suspect]
     Active Substance: DERMATOPHAGOIDES FARINAE\DERMATOPHAGOIDES PTERONYSSINUS
     Indication: RHINITIS ALLERGIC
     Dosage: 12 SQ
     Dates: start: 20180323, end: 20190828

REACTIONS (13)
  - Hypermobility syndrome [Unknown]
  - Connective tissue disorder [Unknown]
  - Laryngitis [Unknown]
  - Chronic tonsillitis [Unknown]
  - Diarrhoea [Unknown]
  - Weight decreased [Recovering/Resolving]
  - Arthralgia [Unknown]
  - Local reaction [Recovered/Resolved]
  - Inflammation [Unknown]
  - Tissue infiltration [Unknown]
  - Gastrooesophageal sphincter insufficiency [Unknown]
  - Gastrooesophageal reflux disease [Unknown]
  - Gastritis [Unknown]

NARRATIVE: CASE EVENT DATE: 20180323
